FAERS Safety Report 4426590-0 (Version None)
Quarter: 2004Q3

REPORT INFORMATION
  Report Type: 
  Country: None (occurrence: None)
  Receive Date: 20040816
  Receipt Date: 20040407
  Transmission Date: 20050211
  Serious: Yes (Hospitalization)
  Sender: FDA-Public Use
  Company Number: US-AMGEN-KDL072120

PATIENT
  Sex: Female
  Weight: 68.1 kg

DRUGS (8)
  1. PROCRIT [Suspect]
     Indication: MYELODYSPLASTIC SYNDROME
     Route: 058
     Dates: start: 20030101
  2. CARDURA [Concomitant]
  3. SYNTHROID [Concomitant]
     Route: 048
  4. LASIX [Concomitant]
  5. PRINIVIL [Concomitant]
     Route: 048
  6. VIOXX [Concomitant]
  7. VITAMIN B-12 [Concomitant]
  8. LOPRESSOR [Concomitant]

REACTIONS (2)
  - ALOPECIA [None]
  - STRESS SYMPTOMS [None]
